FAERS Safety Report 13460036 (Version 1)
Quarter: 2017Q2

REPORT INFORMATION
  Report Type: Spontaneous
  Country: US (occurrence: US)
  Receive Date: 20170420
  Receipt Date: 20170420
  Transmission Date: 20170830
  Serious: No
  Sender: FDA-Public Use
  Company Number: US-TEVA-726916ACC

PATIENT
  Sex: Female
  Weight: 55.84 kg

DRUGS (1)
  1. ZOLPIDEM TARTRATE TABLETS [Suspect]
     Active Substance: ZOLPIDEM TARTRATE
     Indication: SLEEP DISORDER

REACTIONS (6)
  - Gastrointestinal sounds abnormal [Unknown]
  - Constipation [Unknown]
  - Dizziness [Unknown]
  - Weight decreased [Unknown]
  - Abdominal pain upper [Unknown]
  - Terminal insomnia [Unknown]

NARRATIVE: CASE EVENT DATE: 2016
